FAERS Safety Report 8027934-3 (Version None)
Quarter: 2012Q1

REPORT INFORMATION
  Report Type: 
  Country: None (occurrence: None)
  Receive Date: 20120104
  Receipt Date: 20111223
  Transmission Date: 20120608
  Serious: Yes (Other)
  Sender: FDA-Public Use
  Company Number: 2011-01452

PATIENT
  Age: 80 Year
  Sex: Male
  Weight: 104.3273 kg

DRUGS (3)
  1. LISINOPRIL [Suspect]
     Indication: HYPERTENSION
     Dosage: 10 MG (10 MG, 1 IN 1 D), PER ORAL
     Route: 048
     Dates: start: 20080101
  2. ASPIRIN [Concomitant]
  3. ALLOPURINOL [Concomitant]

REACTIONS (5)
  - CONTUSION [None]
  - MUSCULAR WEAKNESS [None]
  - FALL [None]
  - MUSCLE SPASMS [None]
  - MUSCLE ATROPHY [None]
